FAERS Safety Report 9677549 (Version 1)
Quarter: 2013Q4

REPORT INFORMATION
  Report Type: Spontaneous
  Country: US (occurrence: None)
  Receive Date: 20131107
  Receipt Date: 20131107
  Transmission Date: 20140711
  Serious: Yes (Disabling)
  Sender: FDA-Public Use
  Company Number: None

PATIENT
  Age: 33 Year
  Sex: Female
  Weight: 122.47 kg

DRUGS (1)
  1. LUPRON DEPOT [Suspect]
     Indication: ENDOMETRIOSIS
     Dosage: 1 INJECTION, INTO THE MUSCLE
     Dates: start: 20130614, end: 20131106

REACTIONS (13)
  - Arthralgia [None]
  - Back pain [None]
  - Pelvic pain [None]
  - Intervertebral disc degeneration [None]
  - Haemangioma of bone [None]
  - Gait disturbance [None]
  - Fatigue [None]
  - Anxiety [None]
  - Depression [None]
  - Amnesia [None]
  - Confusional state [None]
  - Disturbance in attention [None]
  - Dermal cyst [None]
